FAERS Safety Report 5279778-3 (Version None)
Quarter: 2007Q1

REPORT INFORMATION
  Report Type: 
  Country: None (occurrence: None)
  Receive Date: 20061215
  Receipt Date: 20051104
  Transmission Date: 20070707
  Serious: Yes (Other)
  Sender: FDA-Public Use
  Company Number: HQWYE451408NOV05

PATIENT
  Age: 46 Year
  Sex: Female
  Weight: 88.98 kg

DRUGS (5)
  1. EFFEXOR XR [Suspect]
     Indication: BRAIN NEOPLASM
     Dosage: SEE IMAGE
     Route: 048
     Dates: start: 20051004, end: 20051001
  2. EFFEXOR XR [Suspect]
     Indication: BRAIN NEOPLASM
     Dosage: SEE IMAGE
     Route: 048
     Dates: start: 20050906, end: 20051003
  3. EFFEXOR XR [Suspect]
     Indication: BRAIN NEOPLASM
     Dosage: SEE IMAGE
     Route: 048
     Dates: start: 20051001, end: 20051014
  4. VALIUM [Concomitant]
  5. HYDROCODONE (HYDROCODONE) [Concomitant]

REACTIONS (6)
  - ANXIETY [None]
  - CONDITION AGGRAVATED [None]
  - INSOMNIA [None]
  - NERVOUSNESS [None]
  - SEROTONIN SYNDROME [None]
  - TREMOR [None]
